FAERS Safety Report 10665041 (Version 1)
Quarter: 2014Q4

REPORT INFORMATION
  Report Type: Spontaneous
  Country: US (occurrence: US)
  Receive Date: 20141219
  Receipt Date: 20141219
  Transmission Date: 20150529
  Serious: No
  Sender: FDA-Public Use
  Company Number: US-MYLANLABS-2014S1008335

PATIENT
  Age: 64 Year
  Sex: Male
  Weight: 93 kg

DRUGS (1)
  1. ROCURONIUM BROMIDE INJECTION [Suspect]
     Active Substance: ROCURONIUM BROMIDE
     Dosage: 50 MG,ONCE
     Route: 042
     Dates: start: 20140403, end: 20140403

REACTIONS (3)
  - Cough [Recovered/Resolved]
  - Drug ineffective [Recovered/Resolved]
  - Muscle twitching [Recovered/Resolved]

NARRATIVE: CASE EVENT DATE: 20140403
